FAERS Safety Report 12301760 (Version 1)
Quarter: 2016Q2

REPORT INFORMATION
  Report Type: Spontaneous
  Country: FR (occurrence: FR)
  Receive Date: 20160425
  Receipt Date: 20160425
  Transmission Date: 20160815
  Serious: Yes (Other)
  Sender: FDA-Public Use
  Company Number: FR-TEVA-652662ISR

PATIENT
  Age: 76 Year
  Sex: Male

DRUGS (2)
  1. LEVOFLOXACINE TEVA 500 MG [Suspect]
     Active Substance: LEVOFLOXACIN
     Route: 048
     Dates: start: 201603, end: 2016
  2. ATORVASTATINE TEVA SANTE 40 MG [Suspect]
     Active Substance: ATORVASTATIN
     Route: 048
     Dates: end: 2016

REACTIONS (3)
  - Rhabdomyolysis [Not Recovered/Not Resolved]
  - Pain in extremity [Not Recovered/Not Resolved]
  - Tendonitis [Not Recovered/Not Resolved]

NARRATIVE: CASE EVENT DATE: 201603
